FAERS Safety Report 6386364-0 (Version None)
Quarter: 2009Q3

REPORT INFORMATION
  Report Type: 
  Country: None (occurrence: None)
  Receive Date: 20090930
  Receipt Date: 20090930
  Transmission Date: 20100115
  Serious: No
  Sender: FDA-Public Use
  Company Number: None

PATIENT
  Sex: Female
  Weight: 110.6777 kg

DRUGS (1)
  1. GLYBURIDE [Suspect]

REACTIONS (1)
  - FATIGUE [None]
